FAERS Safety Report 4726755-4 (Version None)
Quarter: 2005Q3

REPORT INFORMATION
  Report Type: 
  Country: None (occurrence: None)
  Receive Date: 20050725
  Receipt Date: 20050420
  Transmission Date: 20060218
  Serious: No
  Sender: FDA-Public Use
  Company Number: USA050496140

PATIENT
  Age: 55 Year
  Sex: Female

DRUGS (3)
  1. STRATTERA [Suspect]
     Indication: ATTENTION DEFICIT/HYPERACTIVITY DISORDER
     Dosage: 80 MG DAY
     Dates: start: 20050201
  2. WELLBUTRIN [Concomitant]
  3. EFFEXOR [Concomitant]

REACTIONS (5)
  - DRY SKIN [None]
  - ERYTHEMA [None]
  - PHOTOSENSITIVITY REACTION [None]
  - RASH [None]
  - SKIN EXFOLIATION [None]
